FAERS Safety Report 6765880-3 (Version None)
Quarter: 2010Q2

REPORT INFORMATION
  Report Type: 
  Country: None (occurrence: None)
  Receive Date: 20100611
  Receipt Date: 20100602
  Transmission Date: 20101027
  Serious: Yes (Other)
  Sender: FDA-Public Use
  Company Number: PHRM2007FR02148

PATIENT
  Age: 29 Year
  Sex: Female

DRUGS (2)
  1. LAMISIL [Suspect]
     Indication: ONYCHOMYCOSIS
     Dosage: 250 MG, QD
     Route: 048
     Dates: end: 20070801
  2. LOBAMINE-CYSTEINE [Concomitant]

REACTIONS (2)
  - ANTEPARTUM HAEMORRHAGE [None]
  - DRUG EXPOSURE DURING PREGNANCY [None]
